FAERS Safety Report 10200563 (Version 1)
Quarter: 2014Q2

REPORT INFORMATION
  Report Type: Spontaneous
  Country: US (occurrence: US)
  Receive Date: 20140528
  Receipt Date: 20140528
  Transmission Date: 20141212
  Serious: No
  Sender: FDA-Public Use
  Company Number: US-BIOGENIDEC-2013BI081273

PATIENT
  Age: 65 Year
  Sex: Female
  Weight: 71 kg

DRUGS (14)
  1. TECFIDERA [Suspect]
     Indication: MULTIPLE SCLEROSIS
     Route: 048
  2. AMPYRA [Concomitant]
     Route: 048
     Dates: start: 20100422
  3. GILENYA [Concomitant]
     Indication: MULTIPLE SCLEROSIS
     Route: 048
  4. BACLOFEN [Concomitant]
  5. CLONAZEPAM [Concomitant]
  6. EFFEXOR XR [Concomitant]
  7. GLUCOSAMINE CHONDROITIN [Concomitant]
  8. KRILL OMEGA RED OIL [Concomitant]
  9. LIPITOR [Concomitant]
  10. NEURONTIN [Concomitant]
  11. PROVIGIL [Concomitant]
  12. VITAMIN B12 [Concomitant]
  13. FOLIC ACID [Concomitant]
  14. VITAMIN D [Concomitant]

REACTIONS (6)
  - Urinary incontinence [Unknown]
  - Influenza like illness [Unknown]
  - Arthropathy [Unknown]
  - Balance disorder [Unknown]
  - Headache [Recovered/Resolved]
  - Feeling abnormal [Recovered/Resolved]
